FAERS Safety Report 19918014 (Version 1)
Quarter: 2021Q4

REPORT INFORMATION
  Report Type: Spontaneous
  Country: US (occurrence: US)
  Receive Date: 20211004
  Receipt Date: 20211004
  Transmission Date: 20220304
  Serious: No
  Sender: FDA-Public Use
  Company Number: US-OTSUKA-2021_007433

PATIENT
  Age: 47 Year
  Sex: Male

DRUGS (2)
  1. ABILIFY MAINTENA [Suspect]
     Active Substance: ARIPIPRAZOLE
     Indication: Product used for unknown indication
     Dosage: 300 MG
     Route: 065
  2. VIVITROL [Concomitant]
     Active Substance: NALTREXONE
     Indication: Product used for unknown indication
     Dosage: INJECTION
     Route: 065
     Dates: end: 20210302

REACTIONS (3)
  - Product dose omission issue [Unknown]
  - Underdose [Unknown]
  - Product quality issue [Unknown]

NARRATIVE: CASE EVENT DATE: 20210302
